FAERS Safety Report 11894268 (Version 1)
Quarter: 2016Q1

REPORT INFORMATION
  Report Type: Spontaneous
  Country: US (occurrence: None)
  Receive Date: 20160106
  Receipt Date: 20160106
  Transmission Date: 20160526
  Serious: No
  Sender: FDA-Public Use
  Company Number: None

PATIENT
  Age: 38 Year
  Sex: Male

DRUGS (1)
  1. HUMIRA [Suspect]
     Active Substance: ADALIMUMAB
     Indication: COLITIS ULCERATIVE
     Dosage: 40MG?EVERY 2 WEEKS?SQ
     Dates: start: 20150821

REACTIONS (2)
  - Arthralgia [None]
  - Foot fracture [None]

NARRATIVE: CASE EVENT DATE: 20151218
